FAERS Safety Report 25970293 (Version 1)
Quarter: 2025Q4

REPORT INFORMATION
  Report Type: Spontaneous
  Country: CN (occurrence: CN)
  Receive Date: 20251028
  Receipt Date: 20251028
  Transmission Date: 20260117
  Serious: Yes (Other)
  Sender: MERCK SHARP & DOHME LLC
  Company Number: CN-009507513-2342399

PATIENT
  Age: 74 Year
  Sex: Female
  Weight: 56 kg

DRUGS (3)
  1. PEMBROLIZUMAB [Suspect]
     Active Substance: PEMBROLIZUMAB
     Indication: Malignant neoplasm of ampulla of Vater
     Dosage: TIME INTERVAL: TOTAL: 200 MG, ONCE, INTRAVENOUS DRIP
     Route: 041
     Dates: start: 20250925, end: 20250925
  2. OXALIPLATIN [Suspect]
     Active Substance: OXALIPLATIN
     Indication: Malignant neoplasm of ampulla of Vater
     Dosage: TIME INTERVAL: TOTAL: 200 MG, ONCE, INTRAVENOUS DRIP
     Route: 041
     Dates: start: 20250925, end: 20250925
  3. CAPECITABINE [Suspect]
     Active Substance: CAPECITABINE
     Indication: Malignant neoplasm of ampulla of Vater
     Dosage: TIME INTERVAL: CYCLICAL: 1 G, BID ON DAY 1 TO DAY 14 (CYCLICAL), ORAL
     Route: 048
     Dates: start: 20250925, end: 20251009

REACTIONS (2)
  - Myelosuppression [Recovering/Resolving]
  - Product use issue [Unknown]

NARRATIVE: CASE EVENT DATE: 20250925
